FAERS Safety Report 15482596 (Version 2)
Quarter: 2018Q4

REPORT INFORMATION
  Report Type: Spontaneous
  Country: CZ (occurrence: CZ)
  Receive Date: 20181010
  Receipt Date: 20181022
  Transmission Date: 20190205
  Serious: Yes (Death, Hospitalization, Other)
  Sender: FDA-Public Use
  Company Number: CZ-BAYER-2018-184170

PATIENT
  Sex: Male

DRUGS (2)
  1. STIVARGA [Suspect]
     Active Substance: REGORAFENIB
     Indication: GASTROINTESTINAL STROMAL CANCER
     Dosage: DAILY DOSE 160 MG (FOR 21 DAYS)
     Route: 048
     Dates: start: 20130510, end: 20130827
  2. STIVARGA [Suspect]
     Active Substance: REGORAFENIB
     Indication: GASTROINTESTINAL STROMAL CANCER
     Dosage: DAILY DOSE 120 MG (21 DAYS)
     Route: 048
     Dates: end: 20150211

REACTIONS (10)
  - Hypertension [None]
  - Stomatitis [None]
  - Hypomagnesaemia [None]
  - Palmar-plantar erythrodysaesthesia syndrome [Recovering/Resolving]
  - Vomiting [None]
  - Subileus [None]
  - Hypokalaemia [None]
  - Fatigue [None]
  - Gastrointestinal stromal tumour [None]
  - Diarrhoea [Recovering/Resolving]
